FAERS Safety Report 4506425-8 (Version None)
Quarter: 2004Q4

REPORT INFORMATION
  Report Type: 
  Country: None (occurrence: None)
  Receive Date: 20041025
  Receipt Date: 20040730
  Transmission Date: 20050328
  Serious: Yes (Hospitalization)
  Sender: FDA-Public Use
  Company Number: US-JNJFOC-20040800593

PATIENT
  Age: 44 Year
  Sex: Female
  Weight: 68 kg

DRUGS (6)
  1. REMICADE [Suspect]
     Indication: RHEUMATOID ARTHRITIS
     Dosage: 200 MG, INTRAVENOUS
     Route: 042
     Dates: start: 20040708
  2. LEXAPRO [Concomitant]
  3. PREVACID [Concomitant]
  4. ESTROGEN (ESTROGEN NOS) [Concomitant]
  5. KLONOPIN [Concomitant]
  6. TRAZODONE HCL [Concomitant]

REACTIONS (1)
  - SWELLING [None]
